FAERS Safety Report 14878401 (Version 2)
Quarter: 2018Q3

REPORT INFORMATION
  Report Type: Spontaneous
  Country: CO (occurrence: CO)
  Receive Date: 20180511
  Receipt Date: 20180705
  Transmission Date: 20181010
  Serious: Yes (Other)
  Sender: FDA-Public Use
  Company Number: CO-AMGEN-COLSP2016173129

PATIENT
  Age: 19 Year
  Sex: Female

DRUGS (1)
  1. ENBREL [Suspect]
     Active Substance: ETANERCEPT
     Indication: JUVENILE IDIOPATHIC ARTHRITIS
     Dosage: 50 MG, WEEKLY
     Route: 058
     Dates: start: 2008

REACTIONS (7)
  - Mobility decreased [Unknown]
  - Loss of personal independence in daily activities [Unknown]
  - Decreased immune responsiveness [Unknown]
  - Device failure [Unknown]
  - Pain in extremity [Unknown]
  - Tuberculosis [Unknown]
  - Bedridden [Unknown]

NARRATIVE: CASE EVENT DATE: 201606
